FAERS Safety Report 19760893 (Version 1)
Quarter: 2021Q3

REPORT INFORMATION
  Report Type: Spontaneous
  Country: US (occurrence: US)
  Receive Date: 20210828
  Receipt Date: 20210828
  Transmission Date: 20211014
  Serious: Yes (Other)
  Sender: FDA-Public Use
  Company Number: None

PATIENT
  Age: 53 Year
  Sex: Female
  Weight: 66.15 kg

DRUGS (4)
  1. VIT D [Concomitant]
     Active Substance: VITAMIN D NOS
  2. ZINC. [Concomitant]
     Active Substance: ZINC
  3. VITAMIN C [Concomitant]
     Active Substance: ASCORBIC ACID
  4. CASIRIVIMAB AND IMDEVIMAB [Suspect]
     Active Substance: CASIRIVIMAB\IMDEVIMAB
     Indication: COVID-19
     Dosage: ?          OTHER ROUTE:INJECTION SUB CUE?
     Route: 058
     Dates: start: 20210826, end: 20210826

REACTIONS (4)
  - Peripheral swelling [None]
  - Pruritus [None]
  - Hypersensitivity [None]
  - Urticaria [None]

NARRATIVE: CASE EVENT DATE: 20210827
